FAERS Safety Report 16894230 (Version 1)
Quarter: 2019Q4

REPORT INFORMATION
  Report Type: Spontaneous
  Country: US (occurrence: US)
  Receive Date: 20191008
  Receipt Date: 20191008
  Transmission Date: 20200122
  Serious: No
  Sender: FDA-Public Use
  Company Number: US-INDIVIOR US-INDV-117531-2019

PATIENT
  Sex: Female

DRUGS (3)
  1. SUBOXONE [Suspect]
     Active Substance: BUPRENORPHINE HYDROCHLORIDE\NALOXONE HYDROCHLORIDE
     Dosage: ATLEAST ONE FILM A DAY BUT MAY BE DOESNOT ONE DAY
     Route: 065
  2. SUBOXONE [Suspect]
     Active Substance: BUPRENORPHINE HYDROCHLORIDE\NALOXONE HYDROCHLORIDE
     Dosage: ABOUT 2 MG
     Route: 065
     Dates: start: 20190129
  3. SUBOXONE [Suspect]
     Active Substance: BUPRENORPHINE HYDROCHLORIDE\NALOXONE HYDROCHLORIDE
     Indication: DRUG DEPENDENCE
     Dosage: 8 MILLIGRAM, TID
     Route: 065

REACTIONS (14)
  - Antisocial behaviour [Unknown]
  - Inappropriate schedule of product administration [Unknown]
  - Psychomotor hyperactivity [Recovered/Resolved]
  - Vomiting [Recovered/Resolved]
  - Cold sweat [Not Recovered/Not Resolved]
  - Headache [Recovered/Resolved]
  - Insomnia [Recovered/Resolved]
  - Pain in extremity [Not Recovered/Not Resolved]
  - Laziness [Unknown]
  - Intentional product misuse [Unknown]
  - Drug withdrawal syndrome [Not Recovered/Not Resolved]
  - Somnolence [Recovered/Resolved]
  - Decreased appetite [Recovered/Resolved]
  - Intentional underdose [Unknown]
